FAERS Safety Report 6997721-3 (Version None)
Quarter: 2010Q3

REPORT INFORMATION
  Report Type: 
  Country: None (occurrence: None)
  Receive Date: 20100918
  Receipt Date: 20091216
  Transmission Date: 20110219
  Serious: No
  Sender: FDA-Public Use
  Company Number: US-WYE-H12702609

PATIENT
  Sex: Male

DRUGS (2)
  1. ADVIL PM [Suspect]
     Indication: ANALGESIC THERAPY
     Dosage: 2 CAPLETS AS NEEDED AT NIGHT
     Route: 048
     Dates: start: 20091101
  2. ADVIL PM [Suspect]
     Indication: INSOMNIA

REACTIONS (1)
  - COUGH [None]
